FAERS Safety Report 11152897 (Version 1)
Quarter: 2015Q2

REPORT INFORMATION
  Report Type: Spontaneous
  Country: DK (occurrence: DK)
  Receive Date: 20150601
  Receipt Date: 20150601
  Transmission Date: 20150821
  Serious: Yes (Other)
  Sender: FDA-Public Use
  Company Number: DK-ASTRAZENECA-2015SE51632

PATIENT
  Age: 12475 Day
  Sex: Male
  Weight: 65 kg

DRUGS (3)
  1. SEROQUEL [Suspect]
     Active Substance: QUETIAPINE FUMARATE
     Indication: DRUG DEPENDENCE
     Route: 048
     Dates: start: 20100101
  2. METADON [Concomitant]
     Active Substance: METHADONE HYDROCHLORIDE
     Indication: DRUG DEPENDENCE
     Dates: start: 200912
  3. SEROQUEL [Suspect]
     Active Substance: QUETIAPINE FUMARATE
     Indication: DRUG DEPENDENCE
     Route: 048

REACTIONS (8)
  - Insomnia [Unknown]
  - Drug withdrawal syndrome [Unknown]
  - Dependence [Unknown]
  - Chills [Unknown]
  - Muscle spasms [Unknown]
  - Drug dependence [Unknown]
  - Drug dependence [Not Recovered/Not Resolved]
  - Off label use [Unknown]

NARRATIVE: CASE EVENT DATE: 20140201
